FAERS Safety Report 15885503 (Version 1)
Quarter: 2019Q1

REPORT INFORMATION
  Report Type: Spontaneous
  Country: FR (occurrence: FR)
  Receive Date: 20190129
  Receipt Date: 20190129
  Transmission Date: 20190417
  Serious: Yes (Disabling, Other)
  Sender: FDA-Public Use
  Company Number: FR-TEVA-2019-FR-1003428

PATIENT
  Sex: Male
  Weight: 75.7 kg

DRUGS (11)
  1. SORIATANE [Suspect]
     Active Substance: ACITRETIN
     Dosage: 1 DOSAGE FORMS DAILY;
     Route: 048
     Dates: start: 201709
  2. CERTICAN [Suspect]
     Active Substance: EVEROLIMUS
     Dosage: 2 MILLIGRAM DAILY;
     Route: 048
  3. ICAZ LP 5 MG, GELULE A LIBERATION PROLONGEE [Suspect]
     Active Substance: ISRADIPINE
     Dosage: 2 DOSAGE FORMS DAILY; EXTENDED RELEASE CAPSULE
     Route: 048
  4. ALLOPURINOL. [Suspect]
     Active Substance: ALLOPURINOL
     Dosage: 100 MILLIGRAM DAILY;
     Route: 048
  5. EUPRESSYL [Suspect]
     Active Substance: URAPIDIL
     Dosage: 60 MILLIGRAM DAILY;
     Route: 048
  6. FUROSEMIDE. [Suspect]
     Active Substance: FUROSEMIDE
     Dosage: 125 MILLIGRAM DAILY;
     Route: 048
  7. NEBIVOLOL. [Suspect]
     Active Substance: NEBIVOLOL
     Dosage: 1/4 TABLET 2 TIMES PER DAY
     Route: 048
  8. ARANESP [Suspect]
     Active Substance: DARBEPOETIN ALFA
     Route: 058
  9. APROVEL [Suspect]
     Active Substance: IRBESARTAN
     Dosage: 300 MILLIGRAM DAILY;
     Route: 048
  10. SOLUPRED (PREDNISOLONE SODIUM SULFOBENZOATE) [Suspect]
     Active Substance: PREDNISOLONE SODIUM METAZOATE
     Dosage: 10 AND 5 MG/D ALTERNATING
     Route: 048
  11. UVEDOSE [Suspect]
     Active Substance: CHOLECALCIFEROL
     Route: 048

REACTIONS (2)
  - Retinal disorder [Not Recovered/Not Resolved]
  - Visual acuity reduced [Not Recovered/Not Resolved]

NARRATIVE: CASE EVENT DATE: 2017
